FAERS Safety Report 10819996 (Version 1)
Quarter: 2015Q1

REPORT INFORMATION
  Report Type: Report from Study
  Country: US (occurrence: US)
  Receive Date: 20150218
  Receipt Date: 20150218
  Transmission Date: 20150721
  Serious: No
  Sender: FDA-Public Use
  Company Number: US-ABBVIE-14K-163-1291969-00

PATIENT
  Age: 22 Year
  Sex: Female

DRUGS (4)
  1. HUMIRA [Suspect]
     Active Substance: ADALIMUMAB
     Route: 058
     Dates: start: 20140928
  2. NUVARING [Concomitant]
     Active Substance: ETHINYL ESTRADIOL\ETONOGESTREL
     Indication: CONTRACEPTION
  3. HUMIRA [Suspect]
     Active Substance: ADALIMUMAB
     Indication: COLITIS ULCERATIVE
     Dosage: DAY 1
     Route: 058
     Dates: start: 20140831, end: 20140831
  4. HUMIRA [Suspect]
     Active Substance: ADALIMUMAB
     Dosage: DAY 15
     Route: 058
     Dates: start: 20140914, end: 20140914

REACTIONS (3)
  - Injection site erythema [Not Recovered/Not Resolved]
  - Injection site discolouration [Recovering/Resolving]
  - Injection site reaction [Not Recovered/Not Resolved]

NARRATIVE: CASE EVENT DATE: 2014
